FAERS Safety Report 9733686 (Version 1)
Quarter: 2013Q4

REPORT INFORMATION
  Report Type: Spontaneous
  Country: BR (occurrence: BR)
  Receive Date: 20131205
  Receipt Date: 20131205
  Transmission Date: 20140711
  Serious: Yes (Other)
  Sender: FDA-Public Use
  Company Number: PHHY2013BR141953

PATIENT
  Age: 72 Year
  Sex: Female

DRUGS (1)
  1. ACLASTA [Suspect]
     Indication: OSTEOPOROSIS
     Dosage: 5 MG/100ML, ANNUALLY
     Route: 042
     Dates: start: 201309

REACTIONS (4)
  - Neuralgic amyotrophy [Recovering/Resolving]
  - Neuropathy peripheral [Recovering/Resolving]
  - Musculoskeletal pain [Recovering/Resolving]
  - Neck pain [Recovering/Resolving]
